FAERS Safety Report 19089714 (Version 1)
Quarter: 2021Q2

REPORT INFORMATION
  Report Type: Spontaneous
  Country: US (occurrence: US)
  Receive Date: 20210403
  Receipt Date: 20210403
  Transmission Date: 20210717
  Serious: Yes (Other)
  Sender: FDA-Public Use
  Company Number: US-TAKEDA-2021TUS019103

PATIENT
  Age: 45 Year
  Sex: Male
  Weight: 78 kg

DRUGS (13)
  1. WELLBUTRIN [Concomitant]
     Active Substance: BUPROPION HYDROCHLORIDE
  2. GABAPENTIN. [Concomitant]
     Active Substance: GABAPENTIN
  3. METHOTREXATE. [Concomitant]
     Active Substance: METHOTREXATE
  4. CUVITRU [Suspect]
     Active Substance: HUMAN IMMUNOGLOBULIN G
     Indication: IMMUNODEFICIENCY COMMON VARIABLE
     Dosage: 20 GRAM, Q3WEEKS
     Route: 058
     Dates: start: 20160811
  5. ACETAMINOPHEN. [Concomitant]
     Active Substance: ACETAMINOPHEN
  6. DIPHENHYDRAMINE. [Concomitant]
     Active Substance: DIPHENHYDRAMINE
  7. MULTIVITAMIN (16) [Concomitant]
     Active Substance: VITAMINS
  8. ZYRTEC [Concomitant]
     Active Substance: CETIRIZINE HYDROCHLORIDE
  9. VALACYCLOVIR [Concomitant]
     Active Substance: VALACYCLOVIR HYDROCHLORIDE
  10. CONCERTA [Concomitant]
     Active Substance: METHYLPHENIDATE HYDROCHLORIDE
  11. OMEPRAZOLE. [Concomitant]
     Active Substance: OMEPRAZOLE
  12. EPINEPHRINE. [Concomitant]
     Active Substance: EPINEPHRINE
  13. LMX4 [Concomitant]
     Active Substance: LIDOCAINE

REACTIONS (2)
  - Bone operation [Unknown]
  - Pain [Unknown]

NARRATIVE: CASE EVENT DATE: 20210305
